FAERS Safety Report 11266136 (Version 4)
Quarter: 2015Q4

REPORT INFORMATION
  Report Type: Spontaneous
  Country: JP (occurrence: JP)
  Receive Date: 20150713
  Receipt Date: 20151112
  Transmission Date: 20160304
  Serious: Yes (Hospitalization)
  Sender: FDA-Public Use
  Company Number: JP-ASTELLAS-2015JP014559

PATIENT
  Age: 18 Year
  Sex: Male
  Weight: 46 kg

DRUGS (14)
  1. HAPTOGLOBIN [Concomitant]
     Indication: HAEMOLYSIS
     Route: 042
     Dates: start: 20140120, end: 20140120
  2. ACICLOVIN [Concomitant]
     Active Substance: ACYCLOVIR
     Indication: INFECTION PROPHYLAXIS
     Route: 041
     Dates: start: 20140120, end: 20140208
  3. METHOTREXATE [Concomitant]
     Active Substance: METHOTREXATE
     Indication: PROPHYLAXIS AGAINST GRAFT VERSUS HOST DISEASE
     Route: 042
     Dates: start: 20140121, end: 20140121
  4. MEROPENEM. [Concomitant]
     Active Substance: MEROPENEM
     Indication: FEBRILE NEUTROPENIA
     Route: 042
     Dates: start: 20140203, end: 20140213
  5. FIRSTCIN [Concomitant]
     Active Substance: CEFOZOPRAN HYDROCHLORIDE
     Indication: FEBRILE NEUTROPENIA
     Dosage: DAILY DOSE 1 G
     Route: 042
     Dates: start: 20140114, end: 20140203
  6. TEICOPLANIN [Concomitant]
     Active Substance: TEICOPLANIN
     Indication: FEBRILE NEUTROPENIA
     Route: 042
     Dates: start: 20140121, end: 20140203
  7. PROGRAF [Suspect]
     Active Substance: TACROLIMUS\TACROLIMUS ANHYDROUS
     Indication: PROPHYLAXIS AGAINST GRAFT VERSUS HOST DISEASE
     Dosage: 1.68 MG, CONTINUOUS
     Route: 041
     Dates: start: 20140119, end: 20140213
  8. METHOTREXATE [Concomitant]
     Active Substance: METHOTREXATE
     Route: 042
     Dates: start: 20140126, end: 20140126
  9. METHOTREXATE [Concomitant]
     Active Substance: METHOTREXATE
     Route: 042
     Dates: start: 20140123, end: 20140123
  10. MORPHINE HYDROCHLORIDE [Concomitant]
     Active Substance: MORPHINE HYDROCHLORIDE
     Indication: ANALGESIC THERAPY
     Route: 041
     Dates: start: 20140124, end: 20140130
  11. SOL-MELCORT [Concomitant]
     Active Substance: METHYLPREDNISOLONE SODIUM SUCCINATE
     Indication: PROPHYLAXIS AGAINST GRAFT VERSUS HOST DISEASE
     Route: 042
     Dates: start: 20140120, end: 20140120
  12. OMEPRAL                            /00661202/ [Concomitant]
     Indication: GASTRIC ULCER
     Route: 042
     Dates: start: 20140120, end: 20140211
  13. FUNGUARD [Concomitant]
     Active Substance: MICAFUNGIN SODIUM
     Indication: ANTIFUNGAL PROPHYLAXIS
     Route: 042
     Dates: start: 20140120, end: 20140211
  14. GRAN [Concomitant]
     Active Substance: FILGRASTIM
     Indication: CYTOPENIA
     Route: 041
     Dates: start: 20140125, end: 20140207

REACTIONS (3)
  - Toxic encephalopathy [Recovered/Resolved]
  - Cytopenia [Recovered/Resolved]
  - Gastric ulcer [Recovered/Resolved]

NARRATIVE: CASE EVENT DATE: 20140120
